FAERS Safety Report 25505116 (Version 1)
Quarter: 2025Q3

REPORT INFORMATION
  Report Type: Spontaneous
  Country: US (occurrence: US)
  Receive Date: 20250702
  Receipt Date: 20250702
  Transmission Date: 20251020
  Serious: No
  Sender: SAREPTA THERAPEUTICS
  Company Number: US-SAREPTA THERAPEUTICS INC.-SRP2024-005267

PATIENT
  Age: 18 Year
  Sex: Male

DRUGS (2)
  1. EXONDYS 51 [Suspect]
     Active Substance: ETEPLIRSEN
     Indication: Product used for unknown indication
     Route: 042
     Dates: end: 20241107
  2. EXONDYS 51 [Suspect]
     Active Substance: ETEPLIRSEN
     Route: 042

REACTIONS (4)
  - Chest discomfort [Recovered/Resolved]
  - Oxygen saturation decreased [Recovered/Resolved]
  - Hypotonia [Unknown]
  - Cough [Recovered/Resolved]

NARRATIVE: CASE EVENT DATE: 20241107
